FAERS Safety Report 17712217 (Version 1)
Quarter: 2020Q2

REPORT INFORMATION
  Report Type: Spontaneous
  Country: DE (occurrence: DE)
  Receive Date: 20200427
  Receipt Date: 20200427
  Transmission Date: 20200714
  Serious: Yes (Hospitalization)
  Sender: FDA-Public Use
  Company Number: DE-TEVA-2020-DE-1226612

PATIENT
  Age: 91 Year
  Sex: Male

DRUGS (19)
  1. CEFPODOXIM [Concomitant]
     Active Substance: CEFPODOXIME PROXETIL
     Dosage: 400 MILLIGRAM DAILY;
     Route: 048
  2. FIASP [Concomitant]
     Active Substance: INSULIN ASPART
     Dosage: 14 IE, 1-1-1-0
     Route: 058
  3. TORASEMID [Suspect]
     Active Substance: TORSEMIDE
     Dosage: 30 MILLIGRAM DAILY; 10 MG, 2-1-0-0,
     Route: 048
  4. PREDNISOLON [Suspect]
     Active Substance: PREDNISOLONE
     Dosage: 2.5 MILLIGRAM DAILY;
     Route: 048
  5. ZOLPIDEM [Concomitant]
     Active Substance: ZOLPIDEM TARTRATE
     Dosage: 5 MILLIGRAM DAILY;
     Route: 048
  6. ATARAX [Concomitant]
     Active Substance: HYDROXYZINE HYDROCHLORIDE
     Dosage: 25 MILLIGRAM DAILY;
     Route: 048
  7. ZYLORIC 300MG [Concomitant]
     Dosage: 300 MG, 0-0-0.5-0, UNIT DOSE:150 MG
     Route: 048
  8. XIPAMID [Suspect]
     Active Substance: XIPAMIDE
     Dosage: 40 MILLIGRAM DAILY;
     Route: 048
  9. SALBUTAMOL AL FERTIGINHALAT [Concomitant]
     Dosage: 1.25 MG, 1-1-1-0
     Route: 055
  10. TIM-OPHTAL 0,25% SINE [Concomitant]
     Dosage: .5 MILLIGRAM DAILY;
     Route: 048
  11. MOVICOL [Concomitant]
     Active Substance: POLYETHYLENE GLYCOL 3350\POTASSIUM CHLORIDE\SODIUM BICARBONATE\SODIUM CHLORIDE
     Dosage: NK MG, 1-0-0-0
     Route: 048
  12. ASS 100 [Concomitant]
     Active Substance: ASPIRIN
     Dosage: 100 MILLIGRAM DAILY;
     Route: 048
  13. PANTOZOL 40 MG [Concomitant]
     Dosage: 40 MILLIGRAM DAILY;
     Route: 048
  14. ATORVASTATIN 20MG [Concomitant]
     Active Substance: ATORVASTATIN
     Dosage: 20 MILLIGRAM DAILY;
     Route: 048
  15. CARBIMAZOL [Concomitant]
     Active Substance: CARBIMAZOLE
     Dosage: 10 MG, 3-0-0-0, UNIT DOSE: 30 MG
     Route: 048
  16. LANTUS [Concomitant]
     Active Substance: INSULIN GLARGINE
     Dosage: 40 IU (INTERNATIONAL UNIT) DAILY;
     Route: 058
  17. SPASMEX 15 [Concomitant]
     Dosage: 30 MILLIGRAM DAILY;
     Route: 048
  18. METOHEXAL [Concomitant]
     Active Substance: METOPROLOL
     Dosage: 95 MILLIGRAM DAILY;
     Route: 048
  19. MAGNESIUM [Concomitant]
     Active Substance: MAGNESIUM
     Dosage: NK MG, IF NECESSARY
     Route: 048

REACTIONS (1)
  - Renal impairment [Unknown]
